FAERS Safety Report 4695803-2 (Version None)
Quarter: 2005Q2

REPORT INFORMATION
  Report Type: 
  Country: None (occurrence: None)
  Receive Date: 20050620
  Receipt Date: 20050620
  Transmission Date: 20051028
  Serious: No
  Sender: FDA-Public Use
  Company Number: None

PATIENT
  Sex: Female
  Weight: 64.4108 kg

DRUGS (4)
  1. FOSAMAX [Suspect]
     Indication: OSTEOPENIA
     Dosage: 1 TABLET PO QWK
     Route: 048
     Dates: start: 20010101, end: 20050608
  2. ARAVA [Concomitant]
  3. PREDNISONE TAB [Concomitant]
  4. OGEN [Concomitant]

REACTIONS (3)
  - IMPAIRED HEALING [None]
  - NECROSIS [None]
  - TOOTH ABSCESS [None]
